FAERS Safety Report 13373051 (Version 1)
Quarter: 2017Q1

REPORT INFORMATION
  Report Type: Spontaneous
  Country: US (occurrence: US)
  Receive Date: 20170326
  Receipt Date: 20170326
  Transmission Date: 20170429
  Serious: No
  Sender: FDA-Public Use
  Company Number: None

PATIENT
  Age: 74 Year
  Sex: Female
  Weight: 51.75 kg

DRUGS (11)
  1. OMEPRAZOLE. [Concomitant]
     Active Substance: OMEPRAZOLE
  2. LEVOTHYROZING [Concomitant]
  3. GLUCOSAMINE/CHONDROITAN [Concomitant]
  4. SIMVASTATIN. [Concomitant]
     Active Substance: SIMVASTATIN
  5. BABY ASPERIN [Concomitant]
  6. WOMENS 50+CENTRUM [Concomitant]
  7. FOLIC ACID. [Concomitant]
     Active Substance: FOLIC ACID
  8. IDANDRONATE SODIUM TAB 150MG [Suspect]
     Active Substance: IBANDRONATE SODIUM
     Indication: OSTEOPOROSIS
     Dosage: ?          QUANTITY:1 TABLET(S);OTHER FREQUENCY:1/MONTH;?
     Route: 048
     Dates: start: 20170324, end: 20170324
  9. BCOMPLEX [Concomitant]
  10. CALCIUM 6000+D [Concomitant]
  11. LACTAID [Concomitant]
     Active Substance: LACTASE

REACTIONS (4)
  - Mobility decreased [None]
  - Myalgia [None]
  - Chest pain [None]
  - Back pain [None]

NARRATIVE: CASE EVENT DATE: 20170325
